FAERS Safety Report 13464859 (Version 1)
Quarter: 2017Q2

REPORT INFORMATION
  Report Type: Spontaneous
  Country: DE (occurrence: DE)
  Receive Date: 20170420
  Receipt Date: 20170420
  Transmission Date: 20170830
  Serious: Yes (Other)
  Sender: FDA-Public Use
  Company Number: DE-BEH-2017079599

PATIENT
  Age: 80 Year
  Sex: Male

DRUGS (2)
  1. MARCUMAR [Concomitant]
     Active Substance: PHENPROCOUMON
     Route: 065
  2. BERIPLEX P/N [Suspect]
     Active Substance: COAGULATION FACTOR IX HUMAN\COAGULATION FACTOR VII HUMAN\COAGULATION FACTOR X HUMAN\PROTEIN C\PROTEIN S HUMAN\PROTHROMBIN
     Indication: PREOPERATIVE CARE
     Route: 065

REACTIONS (4)
  - Infusion site extravasation [Unknown]
  - Surgery [Unknown]
  - Pain [Unknown]
  - Injection site necrosis [Unknown]
